FAERS Safety Report 19485274 (Version 1)
Quarter: 2021Q3

REPORT INFORMATION
  Report Type: Spontaneous
  Country: FR (occurrence: FR)
  Receive Date: 20210702
  Receipt Date: 20210702
  Transmission Date: 20211014
  Serious: Yes (Other)
  Sender: FDA-Public Use
  Company Number: FR-AUROBINDO-AUR-APL-2021-028183

PATIENT
  Age: 59 Year
  Sex: Female

DRUGS (4)
  1. SERESTA [Suspect]
     Active Substance: OXAZEPAM
     Indication: PRODUCT USED FOR UNKNOWN INDICATION
     Dosage: 150 MILLIGRAM, ONCE A DAY(50 MG 3 FOIS/J DEPUIS PLUSIEURS MOIS)
     Route: 048
  2. PARACETAMOL [Suspect]
     Active Substance: ACETAMINOPHEN
     Indication: PRODUCT USED FOR UNKNOWN INDICATION
     Dosage: MATIN ET SOIR
     Route: 048
  3. ALCOOL [Suspect]
     Active Substance: ALCOHOL
     Indication: PRODUCT USED FOR UNKNOWN INDICATION
     Dosage: UNK
     Route: 048
  4. CODEINE [Suspect]
     Active Substance: CODEINE
     Indication: PRODUCT USED FOR UNKNOWN INDICATION
     Dosage: MATIN ET SOIR
     Route: 048

REACTIONS (1)
  - Drug use disorder [Not Recovered/Not Resolved]
